FAERS Safety Report 9509893 (Version 1)
Quarter: 2013Q3

REPORT INFORMATION
  Report Type: Spontaneous
  Country: US (occurrence: US)
  Receive Date: 20130909
  Receipt Date: 20130909
  Transmission Date: 20140515
  Serious: No
  Sender: FDA-Public Use
  Company Number: US-BRISTOL-MYERS SQUIBB COMPANY-18827220

PATIENT
  Age: 69 Year
  Sex: Female
  Weight: 81.63 kg

DRUGS (13)
  1. ABILIFY [Suspect]
     Indication: DEPRESSION
     Dosage: EITHER 22 OR 23
     Dates: start: 201303
  2. ABILIFY [Suspect]
     Indication: PAIN
     Dosage: EITHER 22 OR 23
     Dates: start: 201303
  3. CYMBALTA [Suspect]
     Indication: DEPRESSION
  4. CYMBALTA [Suspect]
     Indication: PAIN
  5. LEVOTHYROXINE [Concomitant]
  6. SIMVASTATIN [Concomitant]
  7. ZOLPIDEM [Concomitant]
  8. CELEBREX [Concomitant]
  9. TRAMADOL [Concomitant]
     Indication: PAIN
  10. TIMOLOL [Concomitant]
  11. TRAVATAN [Concomitant]
     Indication: GLAUCOMA
  12. BYSTOLIC [Concomitant]
     Indication: HYPERTENSION
  13. CALCIUM [Concomitant]

REACTIONS (2)
  - Local swelling [Unknown]
  - Weight increased [Unknown]
